FAERS Safety Report 6810798-0 (Version None)
Quarter: 2010Q2

REPORT INFORMATION
  Report Type: 
  Country: None (occurrence: None)
  Receive Date: 20100630
  Receipt Date: 20080218
  Transmission Date: 20101027
  Serious: No
  Sender: FDA-Public Use
  Company Number: US-PFIZER INC-2008010308

PATIENT
  Sex: Female
  Weight: 61.818 kg

DRUGS (5)
  1. ESTRING [Suspect]
     Indication: MULTIPLE SCLEROSIS
     Dates: start: 20050101, end: 20080127
  2. ESTRING [Suspect]
     Indication: MENOPAUSAL SYMPTOMS
  3. ACTONEL [Concomitant]
     Indication: OSTEOPOROSIS
     Route: 048
  4. VITAMIN B-12 [Concomitant]
  5. COPAXONE [Concomitant]

REACTIONS (6)
  - DECREASED APPETITE [None]
  - DIZZINESS [None]
  - FATIGUE [None]
  - HEADACHE [None]
  - NAUSEA [None]
  - OLIGODIPSIA [None]
